FAERS Safety Report 7839897-1 (Version None)
Quarter: 2011Q4

REPORT INFORMATION
  Report Type: 
  Country: None (occurrence: None)
  Receive Date: 20111025
  Receipt Date: 20111017
  Transmission Date: 20120403
  Serious: No
  Sender: FDA-Public Use
  Company Number: US-BIOGENIDEC-2011BI028740

PATIENT
  Age: 50 Year
  Sex: Female

DRUGS (2)
  1. TYSABRI [Suspect]
     Indication: MULTIPLE SCLEROSIS
     Route: 042
     Dates: start: 20110216
  2. HYDROCODONE BITARTRATE [Concomitant]
     Indication: TRIGEMINAL NEURALGIA
     Dates: start: 20080101

REACTIONS (5)
  - IMPAIRED HEALING [None]
  - INSOMNIA [None]
  - UPPER LIMB FRACTURE [None]
  - TRIGEMINAL NEURALGIA [None]
  - FALL [None]
